FAERS Safety Report 11926450 (Version 2)
Quarter: 2016Q1

REPORT INFORMATION
  Report Type: Spontaneous
  Country: FR (occurrence: FR)
  Receive Date: 20160119
  Receipt Date: 20160121
  Transmission Date: 20160526
  Serious: Yes (Other)
  Sender: FDA-Public Use
  Company Number: PHHY2016FR005381

PATIENT
  Age: 44 Year
  Sex: Female

DRUGS (1)
  1. ULTIBRO BREEZHALER [Suspect]
     Active Substance: GLYCOPYRRONIUM\INDACATEROL
     Indication: CHRONIC OBSTRUCTIVE PULMONARY DISEASE
     Dosage: UNK, QD
     Route: 055
     Dates: start: 201512

REACTIONS (4)
  - Angioedema [Unknown]
  - Face oedema [Unknown]
  - Localised oedema [Unknown]
  - Urticaria [Unknown]

NARRATIVE: CASE EVENT DATE: 201512
